FAERS Safety Report 9766232 (Version 1)
Quarter: 2013Q4

REPORT INFORMATION
  Report Type: Spontaneous
  Country: US (occurrence: US)
  Receive Date: 20131217
  Receipt Date: 20131217
  Transmission Date: 20140711
  Serious: No
  Sender: FDA-Public Use
  Company Number: US-GLAXOSMITHKLINE-A1023230A

PATIENT
  Age: 80 Year
  Sex: Male

DRUGS (4)
  1. VOTRIENT [Suspect]
     Indication: RENAL CANCER
     Route: 048
     Dates: start: 20130430
  2. MICARDIS [Concomitant]
  3. ASACOL [Concomitant]
  4. CRESTOR [Concomitant]

REACTIONS (1)
  - Dizziness [Recovered/Resolved]
